FAERS Safety Report 7138728-5 (Version None)
Quarter: 2010Q4

REPORT INFORMATION
  Report Type: 
  Country: None (occurrence: None)
  Receive Date: 20101202
  Receipt Date: 20101202
  Transmission Date: 20110411
  Serious: Yes (Hospitalization)
  Sender: FDA-Public Use
  Company Number: None

PATIENT
  Sex: Male
  Weight: 23.7 kg

DRUGS (7)
  1. CYCLOPHOSPHAMIDE [Suspect]
     Dosage: 890 MG
  2. METHOTREXATE [Suspect]
     Dosage: 24 MG
  3. VINCRISTINE SULFATE [Suspect]
     Dosage: 3.9 MG
  4. DEXAMETHASONE [Suspect]
     Dosage: 126 MG
  5. DOXORUBICIN HCL [Suspect]
     Dosage: 66 MG
  6. CYTARABINE [Suspect]
     Dosage: 404 MG
  7. THIOGUANINE [Suspect]
     Dosage: 500 MG

REACTIONS (9)
  - CONVULSION [None]
  - COUGH [None]
  - ELECTROENCEPHALOGRAM ABNORMAL [None]
  - GAZE PALSY [None]
  - HEADACHE [None]
  - OXYGEN SATURATION DECREASED [None]
  - STARING [None]
  - UNRESPONSIVE TO STIMULI [None]
  - VOMITING [None]
